FAERS Safety Report 7043432 (Version 7)
Quarter: 2013Q1

REPORT INFORMATION
  Report Type: Spontaneous
  Country: US (occurrence: US)
  Receive Date: 20090626
  Receipt Date: 20130114
  Transmission Date: 20140127
  Serious: Yes (Hospitalization, Other)
  Sender: FDA-Public Use
  Company Number: US-009507513-2008-184819-NL

PATIENT
  Sex: 0

DRUGS (4)
  1. NUVARING [Suspect]
     Indication: CONTRACEPTION
     Dosage: DOSE TEXT: 3 WEEKS IN, 1 WEEK OUT, CONTINUING: NO
     Dates: start: 200605, end: 20061004
  2. VITAMINS (UNSPECIFIED) [Concomitant]
     Indication: MEDICAL DIET
     Dosage: FREQUENCY: QD; WITH CALCIUM
  3. MINOCYCLINE HYDROCHLORIDE [Concomitant]
     Indication: ACNE
     Dosage: FREQUENCY: BID
     Dates: start: 20060919
  4. CLINDAMYCIN [Concomitant]
     Route: 061

REACTIONS (22)
  - Partial seizures [Not Recovered/Not Resolved]
  - Haemorrhagic stroke [Recovered/Resolved with Sequelae]
  - Migraine [Recovered/Resolved]
  - Diarrhoea [Recovered/Resolved]
  - Drug hypersensitivity [Unknown]
  - Tonsillar disorder [Unknown]
  - Dysmenorrhoea [Recovering/Resolving]
  - Ear disorder [Unknown]
  - Hypercoagulation [Unknown]
  - Cervical dysplasia [Unknown]
  - Human papilloma virus test positive [Unknown]
  - Intracranial venous sinus thrombosis [Recovered/Resolved with Sequelae]
  - Presyncope [Recovered/Resolved]
  - Aphasia [Recovered/Resolved]
  - Convulsion [Unknown]
  - Treatment noncompliance [Unknown]
  - Weight increased [Unknown]
  - Hypoaesthesia [Unknown]
  - Muscular weakness [Unknown]
  - Muscle tightness [Unknown]
  - Hyperreflexia [Unknown]
  - Pain in extremity [Unknown]
